FAERS Safety Report 8050361-X (Version None)
Quarter: 2012Q1

REPORT INFORMATION
  Report Type: 
  Country: None (occurrence: None)
  Receive Date: 20120117
  Receipt Date: 20120111
  Transmission Date: 20120608
  Serious: Yes (Death, Other)
  Sender: FDA-Public Use
  Company Number: JP-AMGEN-JPNCT2011051840

PATIENT
  Age: 77 Year
  Sex: Male
  Weight: 49 kg

DRUGS (6)
  1. PREDNISOLONE [Concomitant]
     Indication: INTERSTITIAL LUNG DISEASE
     Dosage: 7 MG, UNK
     Route: 048
     Dates: start: 20100524, end: 20101201
  2. VOLTAREN [Concomitant]
     Dosage: UNK
     Route: 048
  3. OMEPRAZOLE [Concomitant]
     Indication: GASTROOESOPHAGEAL REFLUX DISEASE
     Route: 048
     Dates: start: 20071228
  4. PANITUMUMAB [Suspect]
     Indication: COLORECTAL CANCER
     Dosage: 6 MG, Q2WK
     Route: 041
     Dates: start: 20100902, end: 20110106
  5. LIPITOR [Concomitant]
     Dosage: UNK
     Route: 048
  6. TRANEXAMIC ACID [Concomitant]
     Dosage: UNK
     Route: 049

REACTIONS (6)
  - STOMATITIS [None]
  - PARONYCHIA [None]
  - HYPOCALCAEMIA [None]
  - COLORECTAL CANCER [None]
  - HYPOMAGNESAEMIA [None]
  - INTERSTITIAL LUNG DISEASE [None]
